FAERS Safety Report 16763775 (Version 1)
Quarter: 2019Q3

REPORT INFORMATION
  Report Type: Spontaneous
  Country: GR (occurrence: GR)
  Receive Date: 20190902
  Receipt Date: 20190902
  Transmission Date: 20191005
  Serious: Yes (Other)
  Sender: FDA-Public Use
  Company Number: PHHY2019GR200365

PATIENT
  Age: 31 Day
  Sex: Female

DRUGS (4)
  1. AMOXICILLIN+CLAVULANIC ACID [Suspect]
     Active Substance: AMOXICILLIN\CLAVULANIC ACID
     Indication: ESCHERICHIA BACTERAEMIA
     Dosage: UNK
     Route: 065
  2. AMIKACIN. [Suspect]
     Active Substance: AMIKACIN
     Indication: ESCHERICHIA BACTERAEMIA
     Dosage: UNK
     Route: 065
  3. NEOMYCIN. [Suspect]
     Active Substance: NEOMYCIN
     Indication: PROPHYLAXIS
     Dosage: UNK
     Route: 065
  4. AMPHOTERICIN B, LIPOSOME [Concomitant]
     Active Substance: AMPHOTERICIN B
     Indication: CANDIDA INFECTION
     Dosage: UNK
     Route: 065

REACTIONS (13)
  - Vomiting [Unknown]
  - Splenic lesion [Unknown]
  - Systemic candida [Unknown]
  - Escherichia sepsis [Unknown]
  - Skin lesion [Unknown]
  - Candida infection [Unknown]
  - Pyrexia [Unknown]
  - Hyponatraemia [Unknown]
  - Escherichia bacteraemia [Unknown]
  - Hypophagia [Unknown]
  - Hypoproteinaemia [Unknown]
  - Acinetobacter test positive [Unknown]
  - Malaise [Unknown]
